FAERS Safety Report 14304260 (Version 1)
Quarter: 2017Q4

REPORT INFORMATION
  Report Type: Spontaneous
  Country: JP (occurrence: JP)
  Receive Date: 20171219
  Receipt Date: 20171219
  Transmission Date: 20180321
  Serious: Yes (Other)
  Sender: FDA-Public Use
  Company Number: JP-LANNETT COMPANY, INC.-JP-2017LAN001274

PATIENT
  Sex: Male

DRUGS (1)
  1. DANAZOL CAPSULES USP, 200 MG [Suspect]
     Active Substance: DANAZOL
     Indication: THROMBOCYTOPENIA
     Dosage: UNK
     Route: 065

REACTIONS (3)
  - Hepatic fibrosis [Unknown]
  - Sepsis [Unknown]
  - Peritonitis bacterial [Unknown]
